FAERS Safety Report 4873828-1 (Version None)
Quarter: 2005Q4

REPORT INFORMATION
  Report Type: 
  Country: None (occurrence: None)
  Receive Date: 20051201
  Receipt Date: 20050803
  Transmission Date: 20060501
  Serious: No
  Sender: FDA-Public Use
  Company Number: 2005PV000972

PATIENT
  Age: 76 Year
  Sex: Female
  Weight: 98.8842 kg

DRUGS (20)
  1. BYETTA [Suspect]
     Indication: DIABETES MELLITUS
     Dosage: 5 MCG; BID; SC
     Route: 058
     Dates: start: 20050807
  2. METFORMIN [Concomitant]
  3. HUMULIN 70/30 [Concomitant]
  4. AMARYL [Concomitant]
  5. AMBIEN [Concomitant]
  6. ATENOLOL [Concomitant]
  7. AZPOT [Concomitant]
  8. COLCHICINE [Concomitant]
  9. HYZAAR [Concomitant]
  10. FLOVENT [Concomitant]
  11. GABAPENTIN [Concomitant]
  12. LEVOTHROID [Concomitant]
  13. SPIRIVA [Concomitant]
  14. XALATAN [Concomitant]
  15. ASPIRIN [Concomitant]
  16. VITAMIN B-12 [Concomitant]
  17. FOLIC ACID [Concomitant]
  18. VITAMIN B6 [Concomitant]
  19. ASCORBIC ACID [Concomitant]
  20. PEPCID [Concomitant]

REACTIONS (3)
  - BLOOD GLUCOSE INCREASED [None]
  - FATIGUE [None]
  - HEADACHE [None]
